FAERS Safety Report 7879377-0 (Version None)
Quarter: 2011Q4

REPORT INFORMATION
  Report Type: 
  Country: None (occurrence: None)
  Receive Date: 20111101
  Receipt Date: 20111028
  Transmission Date: 20120403
  Serious: Yes (Death, Life-Threatening)
  Sender: FDA-Public Use
  Company Number: JP-B.I. PHARMACEUTICALS,INC./RIDGEFIELD-2011-BP-23150NB

PATIENT
  Age: 89 Year
  Sex: Male
  Weight: 54 kg

DRUGS (15)
  1. SLOW-K [Concomitant]
     Indication: HYPOKALAEMIA
     Dosage: 1200 MG
     Route: 048
     Dates: start: 20110922, end: 20110930
  2. LANSOPRAZOLE [Concomitant]
     Indication: GASTROOESOPHAGEAL REFLUX DISEASE
     Dosage: 30 MG
     Route: 042
     Dates: start: 20110920
  3. CLEANAL [Concomitant]
     Indication: PNEUMONIA
     Dosage: 600 MG
     Route: 048
     Dates: start: 20110921, end: 20110930
  4. RABEPRAZOLE SODIUM [Concomitant]
     Indication: GASTROOESOPHAGEAL REFLUX DISEASE
     Dosage: 10 MG
     Route: 048
     Dates: start: 20110921, end: 20110930
  5. LAC-B [Concomitant]
     Indication: CONSTIPATION
     Dosage: 2 G
     Route: 048
     Dates: start: 20110921, end: 20110930
  6. HANP [Concomitant]
     Indication: CARDIAC FAILURE CONGESTIVE
     Dosage: 1000 MCG
     Route: 042
     Dates: start: 20110920, end: 20110928
  7. ASPIRIN [Concomitant]
     Indication: ATRIAL FIBRILLATION
     Dosage: 100 MG
     Route: 048
     Dates: start: 20110921, end: 20110930
  8. TORSEMIDE [Concomitant]
     Indication: CARDIAC FAILURE CONGESTIVE
     Dosage: 8 MG
     Route: 048
     Dates: start: 20110921, end: 20110930
  9. HOKUNALIN:TAPE [Concomitant]
     Indication: PNEUMONIA
     Dosage: 2 MG
     Route: 062
     Dates: start: 20110921, end: 20110930
  10. TRICHLORMETHIAZIDE [Concomitant]
     Indication: CARDIAC FAILURE CONGESTIVE
     Dosage: 1 MG
     Route: 048
     Dates: start: 20110925, end: 20110930
  11. DIGOXIN [Concomitant]
     Indication: ATRIAL FIBRILLATION
     Dosage: 0.125 MG
     Route: 048
     Dates: start: 20110928, end: 20110930
  12. KALGUT [Concomitant]
     Indication: CARDIAC FAILURE CONGESTIVE
     Dosage: 10 MG
     Route: 048
     Dates: start: 20110925, end: 20110927
  13. PRADAXA [Suspect]
     Indication: ATRIAL FIBRILLATION
     Dosage: 220 MG
     Route: 048
     Dates: start: 20110925, end: 20110929
  14. LASIX [Concomitant]
     Indication: CARDIAC FAILURE CONGESTIVE
     Dosage: 20 MG
     Route: 048
     Dates: start: 20110927, end: 20110930
  15. LOXONIN [Concomitant]
     Indication: BACK PAIN
     Dosage: 100 MG
     Route: 062
     Dates: start: 20110922, end: 20110930

REACTIONS (1)
  - MULTI-ORGAN FAILURE [None]
